FAERS Safety Report 19521624 (Version 1)
Quarter: 2021Q3

REPORT INFORMATION
  Report Type: Spontaneous
  Country: US (occurrence: US)
  Receive Date: 20210713
  Receipt Date: 20210713
  Transmission Date: 20211014
  Serious: Yes (Hospitalization, Other)
  Sender: FDA-Public Use
  Company Number: US-AMGEN-USASP2021104055

PATIENT
  Age: 23 Year
  Sex: Female

DRUGS (2)
  1. INFLIXIMAB [Suspect]
     Active Substance: INFLIXIMAB
     Indication: COLITIS ULCERATIVE
     Dosage: UNK
     Route: 065
  2. BALSALAZIDE [Concomitant]
     Active Substance: BALSALAZIDE
     Dosage: 2.25 GRAM, TID
     Route: 048

REACTIONS (12)
  - Pulmonary embolism [Recovering/Resolving]
  - Colitis ulcerative [Recovered/Resolved]
  - Factor II mutation [Recovering/Resolving]
  - Iron deficiency [Recovering/Resolving]
  - Syncope [Recovered/Resolved]
  - Cardiac ventricular thrombosis [Unknown]
  - Microcytic anaemia [Recovering/Resolving]
  - Protein total decreased [Recovering/Resolving]
  - Blood albumin decreased [Recovering/Resolving]
  - Factor V Leiden mutation [Recovering/Resolving]
  - Hypotension [Recovering/Resolving]
  - Bacteraemia [Recovering/Resolving]
